FAERS Safety Report 17036626 (Version 1)
Quarter: 2019Q4

REPORT INFORMATION
  Report Type: Spontaneous
  Country: US (occurrence: US)
  Receive Date: 20191115
  Receipt Date: 20191115
  Transmission Date: 20200122
  Serious: Yes (Other)
  Sender: FDA-Public Use
  Company Number: US-SA-2019SA313550

PATIENT
  Sex: Male

DRUGS (1)
  1. DULCOEASE [Suspect]
     Active Substance: DOCUSATE SODIUM
     Dosage: UNK, UNK
     Route: 065

REACTIONS (2)
  - Product intolerance [Unknown]
  - Pancreatitis [Unknown]
